FAERS Safety Report 11130778 (Version 1)
Quarter: 2015Q2

REPORT INFORMATION
  Report Type: Spontaneous
  Country: US (occurrence: None)
  Receive Date: 20150521
  Receipt Date: 20150521
  Transmission Date: 20150821
  Serious: No
  Sender: FDA-Public Use
  Company Number: None

PATIENT
  Age: 55 Year
  Sex: Female

DRUGS (9)
  1. LISINOPRIL AND HYDROCHLOROTHIAZIDE [Concomitant]
     Active Substance: HYDROCHLOROTHIAZIDE\LISINOPRIL
  2. OMEPRAZOLE. [Concomitant]
     Active Substance: OMEPRAZOLE
  3. APAP [Concomitant]
     Active Substance: ACETAMINOPHEN
  4. DIPHENHYDRAMINE [Concomitant]
     Active Substance: DIPHENHYDRAMINE
  5. RITUXIMAB [Concomitant]
     Active Substance: RITUXIMAB
  6. ATORVASTATIN [Concomitant]
     Active Substance: ATORVASTATIN
  7. PREDNISONE. [Concomitant]
     Active Substance: PREDNISONE
  8. AMPYRA [Suspect]
     Active Substance: DALFAMPRIDINE
     Indication: MULTIPLE SCLEROSIS
     Route: 048
     Dates: start: 201311
  9. BACLOFEN. [Concomitant]
     Active Substance: BACLOFEN

REACTIONS (4)
  - Neutrophil percentage increased [None]
  - Haemoglobin increased [None]
  - Nucleated red cells [None]
  - Lymphocyte percentage decreased [None]

NARRATIVE: CASE EVENT DATE: 20150208
